FAERS Safety Report 14968522 (Version 1)
Quarter: 2018Q2

REPORT INFORMATION
  Report Type: Spontaneous
  Country: CN (occurrence: CN)
  Receive Date: 20180604
  Receipt Date: 20180604
  Transmission Date: 20180711
  Serious: Yes (Hospitalization)
  Sender: FDA-Public Use
  Company Number: CN-PFIZER INC-2018221574

PATIENT
  Sex: Male
  Weight: 60 kg

DRUGS (2)
  1. NORVASC [Suspect]
     Active Substance: AMLODIPINE BESYLATE
     Indication: HYPERTENSION
     Dosage: 5 MG, 1X/DAY
     Route: 048
     Dates: start: 20160301, end: 20180401
  2. IRBESARTAN HYDROCHLOROTHIAZIDE [Concomitant]
     Active Substance: HYDROCHLOROTHIAZIDE\IRBESARTAN
     Indication: BLOOD PRESSURE MANAGEMENT
     Dosage: 150MG/ 12.5MG, QD`
     Route: 048
     Dates: start: 201603

REACTIONS (2)
  - Prostatomegaly [Unknown]
  - Dysuria [Unknown]

NARRATIVE: CASE EVENT DATE: 2017
